FAERS Safety Report 9074176 (Version 1)
Quarter: 2013Q1

REPORT INFORMATION
  Report Type: Report from Study
  Country: US (occurrence: US)
  Receive Date: 20130128
  Receipt Date: 20130128
  Transmission Date: 20140127
  Serious: No
  Sender: FDA-Public Use
  Company Number: US-ABBOTT-12P-163-0917711-00

PATIENT
  Age: 63 Year
  Sex: Male

DRUGS (8)
  1. HUMIRA 40 MG/0.8 ML PEN [Suspect]
     Indication: GASTRIC DISORDER
     Dates: start: 20111214
  2. LANTIS [Concomitant]
     Indication: TYPE 2 DIABETES MELLITUS
     Dosage: AT BED TIME
  3. NOVOLOG [Concomitant]
     Indication: TYPE 2 DIABETES MELLITUS
     Dosage: SLIDING SCALE DAILY; DEPEND SUGAR LEVELS
  4. LISINOPRIL [Concomitant]
     Indication: PRODUCT USED FOR UNKNOWN INDICATION
     Dosage: DAILY
  5. AZATHIOPRINE [Concomitant]
     Indication: FUNCTIONAL GASTROINTESTINAL DISORDER
  6. AMLODIPINE [Concomitant]
     Indication: PRODUCT USED FOR UNKNOWN INDICATION
     Dosage: DAILY
  7. SERTRALINE [Concomitant]
     Indication: DEPRESSION
     Dosage: DAILY
  8. CRESTOR [Concomitant]
     Indication: PRODUCT USED FOR UNKNOWN INDICATION
     Dosage: DAILY

REACTIONS (1)
  - Paraesthesia [Recovering/Resolving]
